FAERS Safety Report 10908881 (Version 7)
Quarter: 2015Q2

REPORT INFORMATION
  Report Type: Spontaneous
  Country: US (occurrence: US)
  Receive Date: 20150312
  Receipt Date: 20150615
  Transmission Date: 20150821
  Serious: Yes (Hospitalization, Other)
  Sender: FDA-Public Use
  Company Number: US-009507513-1109USA00300

PATIENT
  Sex: Female
  Weight: 56.69 kg

DRUGS (5)
  1. FOSAMAX [Suspect]
     Active Substance: ALENDRONATE SODIUM
     Dosage: 70 MG, UNK
     Route: 048
     Dates: start: 20020107, end: 20080124
  2. ALENDRONATE SODIUM. [Suspect]
     Active Substance: ALENDRONATE SODIUM
     Dosage: 70 MG, UNK
     Route: 048
     Dates: start: 20090924
  3. ALENDRONATE SODIUM. [Suspect]
     Active Substance: ALENDRONATE SODIUM
     Dosage: 70 MG, UNK
     Route: 048
     Dates: start: 20080414, end: 20081217
  4. FOSAMAX [Suspect]
     Active Substance: ALENDRONATE SODIUM
     Indication: OSTEOPOROSIS
     Dosage: UNK
     Route: 048
     Dates: start: 1995, end: 20091124
  5. ALENDRONATE SODIUM. [Suspect]
     Active Substance: ALENDRONATE SODIUM
     Indication: BONE DENSITY DECREASED
     Dosage: 70 MG, UNK
     Route: 048
     Dates: start: 20090313, end: 2009

REACTIONS (31)
  - Limb injury [Unknown]
  - Osteoarthritis [Unknown]
  - Impaired healing [Unknown]
  - Foot fracture [Unknown]
  - Seasonal allergy [Unknown]
  - Depression [Unknown]
  - Limb asymmetry [Unknown]
  - Muscular weakness [Unknown]
  - Hypertension [Unknown]
  - Spinal column stenosis [Unknown]
  - Arthritis [Unknown]
  - Arthritis [Unknown]
  - Carpal tunnel syndrome [Recovering/Resolving]
  - Tendonitis [Unknown]
  - Sensory disturbance [Unknown]
  - Femur fracture [Unknown]
  - Fracture nonunion [Unknown]
  - Poor quality sleep [Not Recovered/Not Resolved]
  - Device breakage [Unknown]
  - Fracture nonunion [Unknown]
  - Intramedullary rod insertion [Unknown]
  - Fatigue [Not Recovered/Not Resolved]
  - Medical device complication [Unknown]
  - Joint injury [Unknown]
  - Impaired healing [Unknown]
  - Foot fracture [Unknown]
  - Spinal osteoarthritis [Unknown]
  - Spondylolisthesis [Unknown]
  - Pain in extremity [Unknown]
  - Fall [Unknown]
  - Osteoarthritis [Unknown]

NARRATIVE: CASE EVENT DATE: 2000
